FAERS Safety Report 24884279 (Version 1)
Quarter: 2025Q1

REPORT INFORMATION
  Report Type: Spontaneous
  Country: US (occurrence: US)
  Receive Date: 20250124
  Receipt Date: 20250124
  Transmission Date: 20250409
  Serious: Yes (Hospitalization)
  Sender: INCYTE
  Company Number: US-INCYTE CORPORATION-2025IN000663

PATIENT

DRUGS (2)
  1. JAKAFI [Suspect]
     Active Substance: RUXOLITINIB
     Indication: Gastrointestinal inflammation
     Dosage: 10 MILLIGRAM, BID
     Route: 048
     Dates: start: 202312
  2. JAKAFI [Suspect]
     Active Substance: RUXOLITINIB
     Indication: Colitis

REACTIONS (4)
  - White blood cell count decreased [Recovered/Resolved]
  - Blood cholesterol increased [Recovered/Resolved]
  - Haemorrhage [Recovered/Resolved]
  - Off label use [Unknown]

NARRATIVE: CASE EVENT DATE: 20231201
